FAERS Safety Report 8084111-8 (Version None)
Quarter: 2012Q1

REPORT INFORMATION
  Report Type: 
  Country: None (occurrence: None)
  Receive Date: 20120128
  Receipt Date: 20110201
  Transmission Date: 20120608
  Serious: No
  Sender: FDA-Public Use
  Company Number: US-ABBOTT-11P-163-0701106-00

PATIENT
  Age: 46 Year
  Sex: Female

DRUGS (8)
  1. PROAIR HFA [Concomitant]
     Indication: PRODUCT USED FOR UNKNOWN INDICATION
     Dosage: 2 PUFFS EVERY 2 HRS
     Route: 055
  2. PREDNISONE TAB [Concomitant]
     Indication: ARTHRITIS
     Route: 048
  3. HYDROCODONE BITARTRATE [Concomitant]
     Indication: PAIN
     Dosage: 5/325 MG EVERY 8HOURS AS NEEDED FOR PAIN
  4. TRAMADOL HCL [Concomitant]
     Indication: PAIN
     Dosage: EVERY 4-6 HOURS AS NEEDED FOR PAIN
     Route: 048
  5. HUMIRA [Suspect]
     Indication: RHEUMATOID ARTHRITIS
     Dates: start: 20110111
  6. STERIODS [Concomitant]
     Dosage: PATIENT IS TRYING TO TAPER OFF STEROIDS
  7. LEFLUNOMIDE [Concomitant]
     Indication: ARTHRITIS
     Route: 048
  8. ADVAIR DISKUS 100/50 [Concomitant]
     Indication: PRODUCT USED FOR UNKNOWN INDICATION
     Dosage: 2 PUFFS EVERY AM AND EVERY PM

REACTIONS (8)
  - SPUTUM DISCOLOURED [None]
  - MENSTRUATION IRREGULAR [None]
  - PLEURAL EFFUSION [None]
  - HEADACHE [None]
  - PRODUCTIVE COUGH [None]
  - HAEMOPTYSIS [None]
  - DRUG INEFFECTIVE [None]
  - PAIN [None]
